FAERS Safety Report 8863272 (Version 1)
Quarter: 2012Q4

REPORT INFORMATION
  Report Type: 
  Country: CZ (occurrence: CZ)
  Receive Date: 20121025
  Receipt Date: 20121025
  Transmission Date: 20130627
  Serious: Yes (Other)
  Sender: FDA-Public Use
  Company Number: CZ-MYLANLABS-2012S1021387

PATIENT
  Age: 8 None
  Sex: Female

DRUGS (18)
  1. AMIODARONE [Suspect]
     Route: 042
  2. AMIODARONE [Suspect]
     Dosage: 200mg 5 times per week
     Route: 048
  3. ATORVASTATIN [Suspect]
     Route: 065
  4. DOXYCYCLINE [Suspect]
     Route: 065
  5. ASPIRIN [Concomitant]
     Route: 065
  6. CARVEDILOL [Concomitant]
     Route: 065
  7. RAMIPRIL [Concomitant]
     Route: 065
  8. FUROSEMIDE [Concomitant]
     Route: 065
  9. TRIMETAZIDINE [Concomitant]
     Route: 065
  10. SPIRONOLACTONE [Concomitant]
     Route: 065
  11. LOSEPRAZOL [Concomitant]
     Route: 065
  12. DIGOXIN [Concomitant]
     Route: 065
  13. MAGNESIUM LACTATE [Concomitant]
     Route: 065
  14. LEVOTHYROXINE SODIUM [Concomitant]
     Route: 065
  15. ALLOPURINOL [Concomitant]
     Route: 065
  16. GLIMEPIRIDE [Concomitant]
     Route: 065
  17. CLONAZEPAM [Concomitant]
     Route: 065
  18. OXYCODONE [Concomitant]
     Route: 065

REACTIONS (1)
  - Hepatic function abnormal [Recovering/Resolving]
